FAERS Safety Report 25260069 (Version 1)
Quarter: 2025Q2

REPORT INFORMATION
  Report Type: Spontaneous
  Country: US (occurrence: None)
  Receive Date: 20250501
  Receipt Date: 20250501
  Transmission Date: 20250717
  Serious: No
  Sender: FDA-CTU
  Company Number: None

PATIENT

DRUGS (2)
  1. LURASIDONE [Suspect]
     Active Substance: LURASIDONE
  2. DEPAKOTE [Suspect]
     Active Substance: DIVALPROEX SODIUM

REACTIONS (3)
  - Drug interaction [None]
  - Parkinson^s disease [None]
  - Insomnia [None]

NARRATIVE: CASE EVENT DATE: 20250430
